FAERS Safety Report 8805023 (Version 1)
Quarter: 2012Q4

REPORT INFORMATION
  Report Type: 
  Country: US (occurrence: US)
  Receive Date: 20120924
  Receipt Date: 20120924
  Transmission Date: 20130627
  Serious: Yes (Hospitalization)
  Sender: FDA-Public Use
  Company Number: US-MUTUAL PHARMACEUTICAL COMPANY, INC.-CLCY20120139

PATIENT
  Age: 74 Year
  Sex: Female

DRUGS (3)
  1. COLCRYS [Suspect]
     Indication: GOUT
     Route: 048
     Dates: start: 20110325, end: 20110326
  2. ENAPRIL [Concomitant]
     Indication: BLOOD PRESSURE HIGH
     Route: 048
  3. METOLAZONE [Concomitant]
     Indication: DIURETIC THERAPY
     Route: 048

REACTIONS (15)
  - Prescribed overdose [None]
  - Palpitations [Recovered/Resolved]
  - Diarrhoea [Not Recovered/Not Resolved]
  - Dyspnoea [Recovered/Resolved]
  - Fluid overload [Recovered/Resolved]
  - Drug dispensing error [None]
  - Dry mouth [Not Recovered/Not Resolved]
  - Off label use [None]
  - Faecal incontinence [Recovering/Resolving]
  - Skin fissures [Recovered/Resolved]
  - Ageusia [Not Recovered/Not Resolved]
  - Diplopia [Recovered/Resolved]
  - Drug hypersensitivity [None]
  - Excoriation [Recovered/Resolved]
  - Neuropathy peripheral [Not Recovered/Not Resolved]
